FAERS Safety Report 18812939 (Version 1)
Quarter: 2021Q1

REPORT INFORMATION
  Report Type: Spontaneous
  Country: US (occurrence: US)
  Receive Date: 20210131
  Receipt Date: 20210131
  Transmission Date: 20210419
  Serious: Yes (Death, Other)
  Sender: FDA-Public Use
  Company Number: US-PURDUE-USA-2020-0185226

PATIENT
  Age: 34 Year
  Sex: Male

DRUGS (1)
  1. HYDROMORPHONE HYDROCHLORIDE IMMEDIATE?RELEASE (SIMILAR TO IND 38,424) [Suspect]
     Active Substance: HYDROMORPHONE HYDROCHLORIDE
     Indication: PRODUCT USED FOR UNKNOWN INDICATION
     Route: 048

REACTIONS (7)
  - Hepatic steatosis [Unknown]
  - Overdose [Unknown]
  - Obesity [Unknown]
  - Toxicity to various agents [Fatal]
  - Hepatosplenomegaly [Unknown]
  - Cardiomegaly [Unknown]
  - Drug dependence [Unknown]

NARRATIVE: CASE EVENT DATE: 20170505
